FAERS Safety Report 18135012 (Version 1)
Quarter: 2020Q3

REPORT INFORMATION
  Report Type: Spontaneous
  Country: CN (occurrence: CN)
  Receive Date: 20200811
  Receipt Date: 20200811
  Transmission Date: 20201103
  Serious: Yes (Hospitalization)
  Sender: FDA-Public Use
  Company Number: CN-PFIZER INC-2020304232

PATIENT
  Age: 30 Year
  Sex: Male
  Weight: 65 kg

DRUGS (2)
  1. MEDROL [Suspect]
     Active Substance: METHYLPREDNISOLONE
     Indication: THROMBOCYTOPENIA
  2. MEDROL [Suspect]
     Active Substance: METHYLPREDNISOLONE
     Indication: IMMUNOMODULATORY THERAPY
     Dosage: 5 DF, 1X/DAY
     Route: 048
     Dates: start: 20200320, end: 20200730

REACTIONS (2)
  - Generalised oedema [Recovering/Resolving]
  - Deformity [Recovering/Resolving]

NARRATIVE: CASE EVENT DATE: 20200730
